FAERS Safety Report 13473114 (Version 1)
Quarter: 2017Q2

REPORT INFORMATION
  Report Type: Spontaneous
  Country: NO (occurrence: NO)
  Receive Date: 20170424
  Receipt Date: 20170424
  Transmission Date: 20170830
  Serious: Yes (Disabling)
  Sender: FDA-Public Use
  Company Number: NO-SEPTODONT-201703972

PATIENT
  Age: 68 Year
  Sex: Male

DRUGS (1)
  1. SEPTOCAINE [Suspect]
     Active Substance: ARTICAINE HYDROCHLORIDE\EPINEPHRINE BITARTRATE
     Indication: DENTAL LOCAL ANAESTHESIA
     Route: 004
     Dates: start: 20160922, end: 20160922

REACTIONS (5)
  - Oral dysaesthesia [Recovering/Resolving]
  - Dysgeusia [Recovering/Resolving]
  - Drug effect prolonged [None]
  - Neurotoxicity [None]
  - Paraesthesia oral [Recovering/Resolving]

NARRATIVE: CASE EVENT DATE: 20160922
